FAERS Safety Report 6611635-X (Version None)
Quarter: 2010Q1

REPORT INFORMATION
  Report Type: 
  Country: None (occurrence: None)
  Receive Date: 20100303
  Receipt Date: 20100219
  Transmission Date: 20100710
  Serious: Yes (Hospitalization, Other)
  Sender: FDA-Public Use
  Company Number: PHEH2010US02649

PATIENT
  Sex: Male
  Weight: 96.8 kg

DRUGS (1)
  1. EXJADE [Suspect]
     Indication: MYELODYSPLASTIC SYNDROME
     Dosage: 500MG DAILY
     Route: 048
     Dates: start: 20100129

REACTIONS (2)
  - CENTRAL VENOUS CATHETERISATION [None]
  - PNEUMONIA [None]
